FAERS Safety Report 19431880 (Version 1)
Quarter: 2021Q2

REPORT INFORMATION
  Report Type: Spontaneous
  Country: EE (occurrence: EE)
  Receive Date: 20210618
  Receipt Date: 20210618
  Transmission Date: 20210717
  Serious: Yes (Other)
  Sender: FDA-Public Use
  Company Number: EE-JNJFOC-20210635720

PATIENT
  Age: 69 Year
  Sex: Male

DRUGS (1)
  1. XARELTO [Suspect]
     Active Substance: RIVAROXABAN
     Indication: ATRIAL FIBRILLATION
     Dosage: 15 MG, QD
     Route: 048

REACTIONS (5)
  - Off label use [Unknown]
  - Prostate cancer [Unknown]
  - Haemoglobin decreased [Unknown]
  - Serum ferritin decreased [Unknown]
  - Haematuria [Unknown]

NARRATIVE: CASE EVENT DATE: 202105
